FAERS Safety Report 5229551-7 (Version None)
Quarter: 2007Q1

REPORT INFORMATION
  Report Type: 
  Country: None (occurrence: None)
  Receive Date: 20070201
  Receipt Date: 20070123
  Transmission Date: 20070707
  Serious: Yes (Other)
  Sender: FDA-Public Use
  Company Number: 2007304452

PATIENT
  Sex: Female

DRUGS (1)
  1. SUDAFED S.A. [Suspect]
     Dosage: 2 TABLETS / FREQUENCY UNSPECIFIED, ORAL
     Route: 048

REACTIONS (3)
  - DYSPNOEA [None]
  - FEELING JITTERY [None]
  - TREMOR [None]
